FAERS Safety Report 4429597-2 (Version None)
Quarter: 2004Q3

REPORT INFORMATION
  Report Type: 
  Country: None (occurrence: None)
  Receive Date: 20040819
  Receipt Date: 20040819
  Transmission Date: 20050211
  Serious: Yes (Death, Hospitalization)
  Sender: FDA-Public Use
  Company Number: GB-BRISTOL-MYERS SQUIBB COMPANY-12676011

PATIENT
  Age: 75 Year
  Sex: Male

DRUGS (14)
  1. CARBOPLATIN [Suspect]
     Indication: BRONCHIAL CARCINOMA
  2. ETOPOSIDE [Suspect]
     Indication: BRONCHIAL CARCINOMA
  3. QVAR 40 [Suspect]
     Indication: ASTHMA
     Route: 055
     Dates: start: 20030922, end: 20040311
  4. FLUTICASONE PROPIONATE [Concomitant]
     Indication: RHINITIS ALLERGIC
     Route: 045
  5. ALBUTEROL SULFATE [Concomitant]
     Indication: CHRONIC OBSTRUCTIVE AIRWAYS DISEASE
     Dates: start: 20020301
  6. ALBUTEROL SULFATE [Concomitant]
     Dates: start: 20011219
  7. GAVISCON [Concomitant]
     Dates: start: 20040212
  8. TRAZODONE HCL [Concomitant]
     Dates: start: 20040212
  9. NYSTATIN [Concomitant]
     Dates: start: 20030922
  10. DILTIAZEM HCL [Concomitant]
     Dates: start: 20030606
  11. ATORVASTATIN CALCIUM [Concomitant]
     Dates: start: 20020513
  12. PROCTOSEDYL [Concomitant]
     Dates: start: 20000308
  13. ACETAMINOPHEN [Concomitant]
     Dates: start: 19981118
  14. MIGRALEVE [Concomitant]
     Dates: start: 19971013

REACTIONS (5)
  - BRONCHIAL CARCINOMA [None]
  - CHRONIC OBSTRUCTIVE AIRWAYS DISEASE [None]
  - GASTROINTESTINAL HAEMORRHAGE [None]
  - PANCYTOPENIA [None]
  - SEPSIS [None]
